FAERS Safety Report 6809899-2 (Version None)
Quarter: 2010Q2

REPORT INFORMATION
  Report Type: 
  Country: None (occurrence: None)
  Receive Date: 20100630
  Receipt Date: 20100623
  Transmission Date: 20101027
  Serious: Yes (Hospitalization, Other)
  Sender: FDA-Public Use
  Company Number: CH-WYE-G06311210

PATIENT
  Age: 86 Year
  Sex: Female

DRUGS (10)
  1. EFFEXOR [Suspect]
     Indication: DEPRESSION
     Route: 048
     Dates: start: 20091016, end: 20091025
  2. EFFEXOR [Suspect]
     Route: 048
     Dates: start: 20091026, end: 20091116
  3. EFFEXOR [Suspect]
     Route: 048
     Dates: start: 20091117, end: 20100508
  4. MS CONTIN [Concomitant]
     Route: 048
     Dates: start: 20091016
  5. MUTAGRIP [Concomitant]
     Route: 030
     Dates: start: 20091105, end: 20091105
  6. LAXOBERON [Concomitant]
     Dates: start: 20091011
  7. NEXIUM [Concomitant]
     Dates: start: 20091112
  8. NEURONTIN [Concomitant]
     Route: 048
     Dates: start: 20090806, end: 20100508
  9. MORPHINE [Concomitant]
     Dosage: 20 MG THREE TIMES DAILY IN RESERVE
     Dates: start: 20091016
  10. MORPHINE [Concomitant]
     Dosage: UNSPECIFIED FORMS AND DOSES OF MORPHINE
     Dates: start: 20091011, end: 20091015

REACTIONS (4)
  - ANTIDEPRESSANT DRUG LEVEL ABOVE THERAPEUTIC [None]
  - DRUG TOXICITY [None]
  - SEROTONIN SYNDROME [None]
  - TREMOR [None]
